FAERS Safety Report 7262972-X (Version None)
Quarter: 2011Q1

REPORT INFORMATION
  Report Type: 
  Country: None (occurrence: None)
  Receive Date: 20110130
  Receipt Date: 20101006
  Transmission Date: 20110831
  Serious: No
  Sender: FDA-Public Use
  Company Number: US-ABBOTT-10P-163-0676170-00

PATIENT
  Sex: Female
  Weight: 78.088 kg

DRUGS (3)
  1. HUMIRA [Suspect]
     Indication: CROHN'S DISEASE
     Dates: start: 20100101
  2. METFORMIN HYDROCHLORIDE [Concomitant]
     Indication: DIABETES MELLITUS
     Dates: start: 20070101
  3. OXYGEN [Concomitant]
     Indication: RESPIRATORY DISORDER

REACTIONS (4)
  - PARANASAL SINUS HYPERSECRETION [None]
  - TOOTH DISORDER [None]
  - CHEST PAIN [None]
  - WEIGHT INCREASED [None]
